FAERS Safety Report 5771258-1 (Version None)
Quarter: 2008Q2

REPORT INFORMATION
  Report Type: 
  Country: None (occurrence: None)
  Receive Date: 20080612
  Receipt Date: 20080612
  Transmission Date: 20081010
  Serious: Yes (Other)
  Sender: FDA-Public Use
  Company Number: None

PATIENT
  Sex: Female
  Weight: 63.5036 kg

DRUGS (1)
  1. INDERAL LA [Suspect]

REACTIONS (3)
  - ATRIAL FIBRILLATION [None]
  - DRUG EFFECT DECREASED [None]
  - HEART RATE INCREASED [None]
